FAERS Safety Report 8545915-8 (Version None)
Quarter: 2012Q3

REPORT INFORMATION
  Report Type: 
  Country: None (occurrence: None)
  Receive Date: 20120727
  Receipt Date: 20111219
  Transmission Date: 20120928
  Serious: No
  Sender: FDA-Public Use
  Company Number: US-ASTRAZENECA-2011SE70729

PATIENT
  Age: 22 Year
  Sex: Female
  Weight: 52.2 kg

DRUGS (5)
  1. SEROQUEL [Suspect]
     Indication: SCHIZOPHRENIA, PARANOID TYPE
     Route: 048
     Dates: start: 20080101
  2. SEROQUEL [Suspect]
     Route: 048
  3. SEROQUEL [Suspect]
     Route: 048
  4. ATENOLOL [Concomitant]
     Indication: HYPERTENSION
  5. SEROQUEL [Suspect]
     Indication: BIPOLAR DISORDER
     Route: 048
     Dates: start: 20080101

REACTIONS (7)
  - MALAISE [None]
  - OFF LABEL USE [None]
  - INSOMNIA [None]
  - HALLUCINATION [None]
  - PARANOIA [None]
  - HALLUCINATION, AUDITORY [None]
  - DRUG DOSE OMISSION [None]
